FAERS Safety Report 19804332 (Version 1)
Quarter: 2021Q3

REPORT INFORMATION
  Report Type: Spontaneous
  Country: US (occurrence: US)
  Receive Date: 20210908
  Receipt Date: 20210908
  Transmission Date: 20211014
  Serious: No
  Sender: FDA-Public Use
  Company Number: US-FARMAPROD-202105-0729

PATIENT
  Sex: Male
  Weight: 133 kg

DRUGS (12)
  1. OXERVATE [Suspect]
     Active Substance: CENEGERMIN-BKBJ
     Indication: NEUROTROPHIC KERATOPATHY
     Route: 047
     Dates: start: 20210326
  2. ELIQUIS [Concomitant]
     Active Substance: APIXABAN
  3. METHOTREXATE. [Concomitant]
     Active Substance: METHOTREXATE
  4. CENTRUM SILVER .4 [Concomitant]
     Dosage: 300?250 MG TABLET
  5. ALLOPURINOL. [Concomitant]
     Active Substance: ALLOPURINOL
  6. REFRESH CELLUVISC [Concomitant]
     Active Substance: CARBOXYMETHYLCELLULOSE SODIUM
  7. LUTEIN [Concomitant]
     Active Substance: LUTEIN
  8. LEVOTHYROXINE. [Concomitant]
     Active Substance: LEVOTHYROXINE
  9. RESTASIS [Concomitant]
     Active Substance: CYCLOSPORINE
  10. OLMESARTAN/AMLODIPINE/HYDROCHLOROTHIAZIDE [Concomitant]
     Active Substance: AMLODIPINE\HYDROCHLOROTHIAZIDE\OLMESARTAN
  11. OXERVATE [Suspect]
     Active Substance: CENEGERMIN-BKBJ
     Indication: HYPOAESTHESIA EYE
  12. GABAPENTIN. [Concomitant]
     Active Substance: GABAPENTIN

REACTIONS (1)
  - Eyelid pain [Not Recovered/Not Resolved]
